FAERS Safety Report 15095765 (Version 1)
Quarter: 2018Q3

REPORT INFORMATION
  Report Type: Spontaneous
  Country: JP (occurrence: JP)
  Receive Date: 20180702
  Receipt Date: 20180702
  Transmission Date: 20181010
  Serious: Yes (Other)
  Sender: FDA-Public Use
  Company Number: JP-CONCORDIA PHARMACEUTICALS INC.-GSH201806-002158

PATIENT
  Age: 65 Year
  Sex: Male

DRUGS (4)
  1. TRIAMTERENE. [Suspect]
     Active Substance: TRIAMTERENE
     Dosage: 5 DAYS AFTER THE START OF ADMINISTRATION
  2. PREDNISOLONE. [Concomitant]
     Active Substance: PREDNISOLONE
     Indication: LIDDLE^S SYNDROME
     Route: 048
  3. PREDNISOLONE. [Concomitant]
     Active Substance: PREDNISOLONE
     Indication: GLOMERULONEPHRITIS MEMBRANOUS
     Route: 048
  4. TRIAMTERENE. [Suspect]
     Active Substance: TRIAMTERENE
     Indication: LIDDLE^S SYNDROME

REACTIONS (2)
  - Drug effect incomplete [Unknown]
  - Hypotension [Unknown]
